FAERS Safety Report 23992594 (Version 1)
Quarter: 2024Q2

REPORT INFORMATION
  Report Type: Spontaneous
  Country: US (occurrence: US)
  Receive Date: 20240620
  Receipt Date: 20240620
  Transmission Date: 20240716
  Serious: No
  Sender: FDA-Public Use
  Company Number: US-TRAVERE-2024TVT00536

PATIENT
  Age: 56 Year
  Sex: Male

DRUGS (3)
  1. FILSPARI [Suspect]
     Active Substance: SPARSENTAN
     Indication: Product used for unknown indication
     Route: 048
  2. TARPEYO [Suspect]
     Active Substance: BUDESONIDE
     Indication: IgA nephropathy
     Dosage: EXPIRATION DATE 28-FEB-2026, 30-JUN-2026
     Route: 048
     Dates: start: 20230725
  3. TARPEYO [Suspect]
     Active Substance: BUDESONIDE
     Indication: Chronic kidney disease

REACTIONS (5)
  - Joint swelling [Unknown]
  - Ocular hyperaemia [Unknown]
  - Rash macular [Unknown]
  - Blood pressure increased [Unknown]
  - Swelling [Unknown]
